FAERS Safety Report 11877230 (Version 2)
Quarter: 2018Q4

REPORT INFORMATION
  Report Type: Report from Study
  Country: None (occurrence: US)
  Receive Date: 20151229
  Receipt Date: 20181114
  Transmission Date: 20190204
  Serious: Yes (Hospitalization)
  Sender: FDA-Public Use
  Company Number: US-ABBVIE-15P-163-1525521-00

PATIENT
  Age: 68 Year
  Sex: Female
  Weight: 69.2 kg

DRUGS (11)
  1. VIEKIRA PAK [Suspect]
     Active Substance: DASABUVIR\OMBITASVIR\PARITAPREVIR\RITONAVIR
     Indication: HEPATITIS C
     Dosage: 12.5 MG-75 MG -50 MG/250 MG  ORAL DOSE PACK TAB
     Route: 048
     Dates: start: 20150804, end: 20151026
  2. ALLOPURINOL (ZYLOPRIM) [Concomitant]
     Indication: PRODUCT USED FOR UNKNOWN INDICATION
     Route: 048
     Dates: start: 20150318
  3. ZOLOFT [Concomitant]
     Active Substance: SERTRALINE HYDROCHLORIDE
     Indication: PRODUCT USED FOR UNKNOWN INDICATION
     Route: 048
  4. COLCHICINE (MITIGARE) [Concomitant]
     Indication: GOUT
     Dosage: SEE NARRATIVE
     Route: 048
  5. MOBIC [Concomitant]
     Active Substance: MELOXICAM
     Indication: PAIN
     Dosage: MAY INCREASE TO 2 TBALETS ORALLY DAILY AS NEEDED
     Route: 048
  6. SILDENAFIL (REVATIO) [Concomitant]
     Indication: PRODUCT USED FOR UNKNOWN INDICATION
     Dosage: 11 HOUR PRIOR TO SEXUAL ACTIVITY. DO NOT EXCEED 5 TABLETS IN 24 HOURS
     Route: 048
  7. ECOTRIN [Concomitant]
     Active Substance: ASPIRIN
     Indication: PRODUCT USED FOR UNKNOWN INDICATION
     Dosage: TBEC DR
     Route: 048
  8. NICOTINE POLACRILEX (NICORETTE) [Concomitant]
     Indication: EX-TOBACCO USER
     Dosage: 2MG BUCL LOZENGES, Q 4 TO 6 HOURS AS REQUIRED
     Route: 048
  9. TERAZOSIN (HYTRIN) [Concomitant]
     Indication: PRODUCT USED FOR UNKNOWN INDICATION
     Dosage: AT BEDTIME AFTER FINISHING TERAZOSIN 2 MG PRESCRIPTION
     Route: 048
  10. COPEGUS [Suspect]
     Active Substance: RIBAVIRIN
     Indication: HEPATITIS C
     Route: 048
     Dates: start: 20150804, end: 20151026
  11. MOBIC [Concomitant]
     Active Substance: MELOXICAM
     Indication: INFLAMMATION

REACTIONS (4)
  - Hyponatraemia [Unknown]
  - Blood pressure increased [Unknown]
  - Gout [Unknown]
  - Guillain-Barre syndrome [Recovering/Resolving]

NARRATIVE: CASE EVENT DATE: 20151029
